FAERS Safety Report 9299002 (Version 4)
Quarter: 2013Q3

REPORT INFORMATION
  Report Type: Spontaneous
  Country: US (occurrence: US)
  Receive Date: 20130520
  Receipt Date: 20130716
  Transmission Date: 20140515
  Serious: Yes (Death, Hospitalization)
  Sender: FDA-Public Use
  Company Number: US-GILEAD-2013-0075272

PATIENT
  Age: 57 Year
  Sex: Female

DRUGS (4)
  1. LETAIRIS [Suspect]
     Indication: PULMONARY HYPERTENSION
     Dosage: 10 MG, QD
     Dates: start: 20120712
  2. LETAIRIS [Suspect]
     Indication: PORTAL HYPERTENSION
  3. LETAIRIS [Suspect]
     Indication: CONNECTIVE TISSUE DISORDER
  4. REVATIO [Concomitant]

REACTIONS (4)
  - Death [Fatal]
  - Pyrexia [Unknown]
  - Chills [Unknown]
  - Infection [Unknown]
